FAERS Safety Report 19602187 (Version 3)
Quarter: 2022Q1

REPORT INFORMATION
  Report Type: Spontaneous
  Country: US (occurrence: US)
  Receive Date: 20210723
  Receipt Date: 20220109
  Transmission Date: 20220423
  Serious: No
  Sender: FDA-Public Use
  Company Number: US-SA-SAC20210720001220

PATIENT
  Age: 43 Year
  Sex: Female

DRUGS (1)
  1. DUPIXENT [Suspect]
     Active Substance: DUPILUMAB
     Indication: Dermatitis atopic
     Dosage: 300 MG, QOW
     Route: 058
     Dates: start: 202106

REACTIONS (7)
  - Swelling [Unknown]
  - Muscle spasms [Unknown]
  - Eye allergy [Unknown]
  - Adverse drug reaction [Unknown]
  - Eye pruritus [Unknown]
  - Condition aggravated [Unknown]
  - Dry eye [Unknown]
